FAERS Safety Report 5104144-0 (Version None)
Quarter: 2006Q3

REPORT INFORMATION
  Report Type: 
  Country: None (occurrence: None)
  Receive Date: 20060911
  Receipt Date: 20060829
  Transmission Date: 20061208
  Serious: Yes (Hospitalization)
  Sender: FDA-Public Use
  Company Number: 2006-01281

PATIENT
  Age: 80 Year
  Sex: Female
  Weight: 65 kg

DRUGS (3)
  1. VELCADE [Suspect]
     Indication: MANTLE CELL LYMPHOMA
     Dosage: 1.30 MG/M2, INTRAVENOUS
     Route: 042
     Dates: start: 20060530, end: 20060601
  2. ONCOVIN [Concomitant]
  3. DEXAMETHASONE SODIUM PHOSPHATE [Concomitant]

REACTIONS (4)
  - BALANCE DISORDER [None]
  - FALL [None]
  - FRACTURE [None]
  - NEUROPATHY PERIPHERAL [None]
